FAERS Safety Report 13065545 (Version 1)
Quarter: 2016Q4

REPORT INFORMATION
  Report Type: Spontaneous
  Country: JP (occurrence: JP)
  Receive Date: 20161227
  Receipt Date: 20161227
  Transmission Date: 20170207
  Serious: Yes (Other)
  Sender: FDA-Public Use
  Company Number: JP-PFIZER INC-2016592114

PATIENT

DRUGS (1)
  1. SUTENT [Suspect]
     Active Substance: SUNITINIB MALATE

REACTIONS (4)
  - Hypokalaemia [Unknown]
  - Hypertension [Unknown]
  - Oedema [Unknown]
  - Palmar-plantar erythrodysaesthesia syndrome [Unknown]
